FAERS Safety Report 13040018 (Version 1)
Quarter: 2016Q4

REPORT INFORMATION
  Report Type: Spontaneous
  Country: JP (occurrence: JP)
  Receive Date: 20161219
  Receipt Date: 20161219
  Transmission Date: 20170207
  Serious: Yes (Other)
  Sender: FDA-Public Use
  Company Number: JP-JNJFOC-20161215575

PATIENT
  Age: 34 Year
  Sex: Female

DRUGS (17)
  1. NAUZELIN [Concomitant]
     Active Substance: DOMPERIDONE
     Route: 065
  2. MEPTIN [Concomitant]
     Active Substance: PROCATEROL HYDROCHLORIDE
     Route: 065
  3. REMICADE [Suspect]
     Active Substance: INFLIXIMAB
     Indication: PRODUCT USED FOR UNKNOWN INDICATION
     Route: 042
     Dates: start: 20151120, end: 20161121
  4. ZOVIRAX [Concomitant]
     Active Substance: ACYCLOVIR
     Route: 065
  5. CLARITIN [Concomitant]
     Active Substance: LORATADINE
     Route: 065
  6. RABEPRAZOLE NA [Concomitant]
     Active Substance: RABEPRAZOLE SODIUM
     Route: 065
  7. CRAVIT [Concomitant]
     Active Substance: LEVOFLOXACIN
     Route: 065
  8. GENINAX [Concomitant]
     Active Substance: GARENOXACIN MESYLATE
     Route: 065
  9. AVELOX [Concomitant]
     Active Substance: MOXIFLOXACIN HYDROCHLORIDE
     Route: 065
  10. FLAVITAN [Concomitant]
     Active Substance: FLAVIN ADENINE DINUCLEOTIDE
     Route: 065
  11. ALCOHOL. [Concomitant]
     Active Substance: ALCOHOL
     Route: 065
  12. BAKTAR [Concomitant]
     Active Substance: SULFAMETHOXAZOLE\TRIMETHOPRIM
     Route: 065
  13. SINGULAIR [Concomitant]
     Active Substance: MONTELUKAST SODIUM
     Route: 065
  14. WASSER V [Concomitant]
     Route: 065
  15. DIFLUCAN [Concomitant]
     Active Substance: FLUCONAZOLE
     Route: 065
  16. ALCOHOL. [Concomitant]
     Active Substance: ALCOHOL
     Route: 065
  17. CARBENIN [Concomitant]
     Active Substance: BETAMIPRON\PANIPENEM
     Route: 065

REACTIONS (2)
  - Exposure during pregnancy [Unknown]
  - Abortion induced [Unknown]
